FAERS Safety Report 17754107 (Version 2)
Quarter: 2020Q2

REPORT INFORMATION
  Report Type: Report from Study
  Country: US (occurrence: US)
  Receive Date: 20200507
  Receipt Date: 20200527
  Transmission Date: 20200714
  Serious: Yes (Hospitalization, Other)
  Sender: FDA-Public Use
  Company Number: US-GILEAD-2020-0464683

PATIENT
  Age: 13 Year
  Sex: Male
  Weight: 33.2 kg

DRUGS (39)
  1. UPTRAVI [Concomitant]
     Active Substance: SELEXIPAG
  2. BETAPACE [Concomitant]
     Active Substance: SOTALOL HYDROCHLORIDE
  3. OMNIPAQUE [Concomitant]
     Active Substance: IOHEXOL
  4. MAGNESIUM SULFATE. [Concomitant]
     Active Substance: MAGNESIUM SULFATE
  5. CORDARONE [Concomitant]
     Active Substance: AMIODARONE HYDROCHLORIDE
  6. ATROPINE. [Concomitant]
     Active Substance: ATROPINE
  7. D5-1/2NM [Concomitant]
  8. ALDACTONE [Concomitant]
     Active Substance: SPIRONOLACTONE
  9. KETALAR [Concomitant]
     Active Substance: KETAMINE HYDROCHLORIDE
  10. VERSED [Concomitant]
     Active Substance: MIDAZOLAM HYDROCHLORIDE
  11. PRONESTYL [Concomitant]
     Active Substance: PROCAINAMIDE HYDROCHLORIDE
  12. BUMEX [Concomitant]
     Active Substance: BUMETANIDE
  13. LIDOCAINE. [Concomitant]
     Active Substance: LIDOCAINE
  14. POTASSIUM CHLORIDE. [Concomitant]
     Active Substance: POTASSIUM CHLORIDE
  15. AMBRISENTAN [Suspect]
     Active Substance: AMBRISENTAN
     Indication: PULMONARY ARTERIAL HYPERTENSION
     Dosage: 5 MG, QD
     Route: 065
     Dates: start: 20190822
  16. KLOR-CON M [Concomitant]
     Active Substance: POTASSIUM CHLORIDE
  17. CATHFLO ACTIVASE [Concomitant]
     Active Substance: ALTEPLASE
  18. DIURIL [CHLOROTHIAZIDE] [Concomitant]
  19. CALCIUM GLUCONATE. [Concomitant]
     Active Substance: CALCIUM GLUCONATE
  20. ADRENALINE [Concomitant]
     Active Substance: EPINEPHRINE
  21. ADCIRCA [Concomitant]
     Active Substance: TADALAFIL
  22. ATIVAN [Concomitant]
     Active Substance: LORAZEPAM
  23. ALYQ [Concomitant]
     Active Substance: TADALAFIL
  24. LASIX [Concomitant]
     Active Substance: FUROSEMIDE
  25. ALINIA [Concomitant]
     Active Substance: NITAZOXANIDE
  26. LANOXIN [Concomitant]
     Active Substance: DIGOXIN
  27. HEPARIN [Concomitant]
     Active Substance: HEPARIN SODIUM
  28. CULTURELLE [Concomitant]
     Active Substance: LACTOBACILLUS RHAMNOSUS
  29. TYLENOL [Concomitant]
     Active Substance: ACETAMINOPHEN
  30. ASPIRIN. [Concomitant]
     Active Substance: ASPIRIN
  31. FLONASE [Concomitant]
     Active Substance: FLUTICASONE PROPIONATE
  32. COENZYME Q10 [Concomitant]
     Active Substance: UBIDECARENONE
  33. EMLA [Concomitant]
     Active Substance: LIDOCAINE\PRILOCAINE
  34. ROCEPHIN [Concomitant]
     Active Substance: CEFTRIAXONE SODIUM
  35. LACTATED RINGERS SOLUTION [Concomitant]
     Active Substance: CALCIUM CHLORIDE\POTASSIUM CHLORIDE\SODIUM CHLORIDE\SODIUM LACTATE
  36. PRIMACOR [Concomitant]
     Active Substance: MILRINONE LACTATE
  37. SODIUM BICARBONATE. [Concomitant]
     Active Substance: SODIUM BICARBONATE
  38. COZAAR [Concomitant]
     Active Substance: LOSARTAN POTASSIUM
  39. SOTALOL. [Concomitant]
     Active Substance: SOTALOL

REACTIONS (3)
  - Arrhythmia [Unknown]
  - Right ventricular failure [Unknown]
  - Dyspnoea [Unknown]

NARRATIVE: CASE EVENT DATE: 20200415
